FAERS Safety Report 8638791 (Version 2)
Quarter: 2012Q4

REPORT INFORMATION
  Report Type: 
  Country: US (occurrence: US)
  Receive Date: 20120627
  Receipt Date: 20120921
  Transmission Date: 20130627
  Serious: Yes (Hospitalization)
  Sender: FDA-Public Use
  Company Number: US-ELI_LILLY_AND_COMPANY-US201108002303

PATIENT
  Age: 80 Year
  Sex: Female
  Weight: 68.03 kg

DRUGS (13)
  1. FORTEO [Suspect]
     Indication: OSTEOPOROSIS
     Dosage: 20 ug, qd
     Route: 058
     Dates: start: 201111, end: 20120515
  2. FORTEO [Suspect]
     Dosage: 20 ug, qd
     Route: 058
     Dates: end: 20120515
  3. ATENOLOL [Concomitant]
     Dosage: 50 mg, bid
     Route: 048
  4. COUMADIN [Concomitant]
     Dosage: 5 mg, UNK
     Route: 048
  5. DIGOXIN [Concomitant]
     Dosage: 0.125 mg, UNK
     Route: 048
  6. HYDROCODONE W/ACETAMINOPHEN [Concomitant]
     Dosage: UNK
     Route: 048
  7. MIRTAZAPINE [Concomitant]
     Dosage: 7.5 mg, each evening
     Route: 048
  8. OS-CAL + D [Concomitant]
     Dosage: 1 DF, qd
     Route: 048
  9. POTASSIUM CHLORIDE [Concomitant]
     Dosage: 1 DF, bid
     Route: 048
  10. PRILOSEC [Concomitant]
     Dosage: 20 mg, qd
  11. SPIRIVA [Concomitant]
     Dosage: 18 ug, UNK
     Route: 055
  12. TORSEMIDE [Concomitant]
     Dosage: 20 mg, bid
     Route: 048
  13. VITAMIN D3 [Concomitant]
     Dosage: 2000 u, qd

REACTIONS (13)
  - Dizziness [Recovered/Resolved]
  - Confusional state [Recovered/Resolved]
  - Abdominal discomfort [Unknown]
  - Cerumen impaction [Unknown]
  - Confusional state [Unknown]
  - Memory impairment [Unknown]
  - Mood altered [Unknown]
  - Mobility decreased [Not Recovered/Not Resolved]
  - Nasopharyngitis [Unknown]
  - Dizziness [Unknown]
  - Dizziness [Not Recovered/Not Resolved]
  - Nausea [Unknown]
  - Nausea [Not Recovered/Not Resolved]
